FAERS Safety Report 8061947-0 (Version None)
Quarter: 2012Q1

REPORT INFORMATION
  Report Type: 
  Country: None (occurrence: None)
  Receive Date: 20120123
  Receipt Date: 20120111
  Transmission Date: 20120608
  Serious: Yes (Hospitalization)
  Sender: FDA-Public Use
  Company Number: US-BAYER-2010-002126

PATIENT
  Age: 25 Year
  Sex: Female
  Weight: 95.238 kg

DRUGS (6)
  1. XANAX [Concomitant]
     Dosage: 0.25 MG, UNK
     Route: 048
  2. TRILEPTAL [Concomitant]
     Dosage: 900 MG, UNK
     Route: 048
  3. ZOLOFT [Concomitant]
     Dosage: 50 MG, UNK
     Route: 048
  4. YASMIN [Suspect]
     Dosage: UNK
     Route: 048
     Dates: start: 20050101, end: 20050101
  5. WELLBUTRIN [Concomitant]
  6. YASMIN [Suspect]
     Indication: CONTRACEPTION
     Dosage: UNK
     Route: 048
     Dates: start: 20040801, end: 20041101

REACTIONS (2)
  - CHOLELITHIASIS [None]
  - CHOLECYSTITIS CHRONIC [None]
